FAERS Safety Report 8198290-5 (Version None)
Quarter: 2012Q1

REPORT INFORMATION
  Report Type: 
  Country: None (occurrence: None)
  Receive Date: 20120309
  Receipt Date: 20120301
  Transmission Date: 20120608
  Serious: Yes (Hospitalization, Other)
  Sender: FDA-Public Use
  Company Number: US-MERCK-1111USA00240

PATIENT
  Age: 69 Year
  Sex: Female
  Weight: 70 kg

DRUGS (8)
  1. FOSAMAX [Suspect]
     Indication: OSTEOPENIA
     Route: 048
     Dates: start: 20000501, end: 20010101
  2. BONIVA [Suspect]
     Indication: OSTEOPOROSIS
     Route: 065
     Dates: start: 20060201, end: 20060101
  3. FOSAMAX [Suspect]
     Route: 048
     Dates: start: 20080501, end: 20080101
  4. BONIVA [Suspect]
     Indication: OSTEOPENIA
     Route: 065
     Dates: start: 20060201, end: 20060101
  5. FOSAMAX [Suspect]
     Route: 048
     Dates: start: 20010701, end: 20050101
  6. FOSAMAX [Suspect]
     Route: 048
     Dates: start: 20091101
  7. FOSAMAX [Suspect]
     Route: 048
     Dates: start: 20060101, end: 20091001
  8. ALENDRONATE SODIUM [Suspect]
     Route: 048
     Dates: start: 20080901, end: 20090101

REACTIONS (29)
  - PYELONEPHRITIS [None]
  - OSTEOARTHRITIS [None]
  - GASTROINTESTINAL DISORDER [None]
  - FEMUR FRACTURE [None]
  - GALLBLADDER DISORDER [None]
  - LUMBAR SPINAL STENOSIS [None]
  - INTERVERTEBRAL DISC PROTRUSION [None]
  - HYPOLIPIDAEMIA [None]
  - HYPERTENSION [None]
  - TENDON DISORDER [None]
  - DIABETES MELLITUS [None]
  - ANXIETY [None]
  - MUSCLE STRAIN [None]
  - GASTROOESOPHAGEAL REFLUX DISEASE [None]
  - ARTHRALGIA [None]
  - FIBULA FRACTURE [None]
  - GAIT DISTURBANCE [None]
  - FOOT FRACTURE [None]
  - LIGAMENT SPRAIN [None]
  - ARTHRITIS [None]
  - PAIN [None]
  - SPINAL OSTEOARTHRITIS [None]
  - FALL [None]
  - ASTHENIA [None]
  - INTERVERTEBRAL DISC DEGENERATION [None]
  - UTERINE DISORDER [None]
  - FIBROMYALGIA [None]
  - LOW TURNOVER OSTEOPATHY [None]
  - BURSITIS [None]
